FAERS Safety Report 5930386-8 (Version None)
Quarter: 2008Q4

REPORT INFORMATION
  Report Type: 
  Country: None (occurrence: None)
  Receive Date: 20081022
  Receipt Date: 20081007
  Transmission Date: 20090506
  Serious: Yes (Other)
  Sender: FDA-Public Use
  Company Number: 8029479

PATIENT
  Age: 16 Month
  Sex: Male
  Weight: 12.5 kg

DRUGS (5)
  1. KEPPRA [Suspect]
     Indication: CONVULSION
     Dosage: 500 MG /D TRP
     Route: 064
     Dates: start: 20051213, end: 20060206
  2. KEPPRA [Suspect]
     Indication: CONVULSION
     Dosage: 1000 MG /D TRP
     Route: 064
     Dates: start: 20060206, end: 20060901
  3. KLONOPIN [Concomitant]
  4. FOLIC ACID [Concomitant]
  5. VITAMIN TAB [Concomitant]

REACTIONS (3)
  - DEVELOPMENTAL DELAY [None]
  - MATERNAL DRUGS AFFECTING FOETUS [None]
  - SPEECH DISORDER DEVELOPMENTAL [None]
